FAERS Safety Report 17741480 (Version 2)
Quarter: 2021Q2

REPORT INFORMATION
  Report Type: Spontaneous
  Country: US (occurrence: US)
  Receive Date: 20200504
  Receipt Date: 20210420
  Transmission Date: 20210716
  Serious: Yes (Other)
  Sender: FDA-Public Use
  Company Number: US-PERRIGO-20US006181

PATIENT
  Age: 57 Year
  Sex: Male

DRUGS (5)
  1. OMEPRAZOLE. [Suspect]
     Active Substance: OMEPRAZOLE
     Indication: GASTROOESOPHAGEAL REFLUX DISEASE
     Dosage: 20 MG, BID
     Route: 048
     Dates: start: 2012, end: 2018
  2. PREVACID [Suspect]
     Active Substance: LANSOPRAZOLE
     Indication: GASTROOESOPHAGEAL REFLUX DISEASE
     Dosage: 30 MG, QD
     Route: 048
     Dates: start: 201807
  3. PREVACID 24 HR [Suspect]
     Active Substance: LANSOPRAZOLE
     Indication: GASTROOESOPHAGEAL REFLUX DISEASE
     Dosage: 15 MG, QD
     Route: 048
     Dates: start: 2009, end: 2010
  4. OMEPRAZOLE. [Suspect]
     Active Substance: OMEPRAZOLE
     Dosage: 20 MG, QD PRN
     Route: 048
     Dates: start: 20130514, end: 20170811
  5. NEXIUM [Suspect]
     Active Substance: ESOMEPRAZOLE MAGNESIUM
     Indication: GASTROOESOPHAGEAL REFLUX DISEASE
     Dosage: 20 MG, QD
     Route: 048
     Dates: start: 2014, end: 2018

REACTIONS (14)
  - Chronic kidney disease [Not Recovered/Not Resolved]
  - Nephrectomy [Not Recovered/Not Resolved]
  - Renal cyst [Unknown]
  - Renal impairment [Unknown]
  - Renal cell carcinoma [Unknown]
  - Haematuria [Not Recovered/Not Resolved]
  - Hypertensive nephropathy [Unknown]
  - Pyelonephritis chronic [Unknown]
  - Glomerulosclerosis [Unknown]
  - Renal cancer [Unknown]
  - Diabetic nephropathy [Unknown]
  - Proteinuria [Not Recovered/Not Resolved]
  - Nephropathy [Unknown]
  - Nocturia [Not Recovered/Not Resolved]

NARRATIVE: CASE EVENT DATE: 2015
